FAERS Safety Report 6879864-8 (Version None)
Quarter: 2010Q3

REPORT INFORMATION
  Report Type: 
  Country: None (occurrence: None)
  Receive Date: 20100728
  Receipt Date: 20100713
  Transmission Date: 20110219
  Serious: Yes (Hospitalization)
  Sender: FDA-Public Use
  Company Number: JP-ROCHE-710718

PATIENT
  Sex: Female
  Weight: 59 kg

DRUGS (54)
  1. KYTRIL [Suspect]
     Indication: VOMITING
     Route: 042
     Dates: start: 20090207, end: 20090829
  2. KYTRIL [Suspect]
     Route: 042
     Dates: start: 20091027, end: 20091113
  3. KYTRIL [Suspect]
     Route: 042
     Dates: start: 20091127, end: 20100120
  4. KYTRIL [Suspect]
     Route: 042
     Dates: start: 20100203, end: 20100519
  5. AVASTIN [Suspect]
     Indication: RECTAL CANCER METASTATIC
     Dosage: DOSE FORM: INJECTION
     Route: 041
     Dates: start: 20091125, end: 20100101
  6. AVASTIN [Suspect]
     Route: 041
     Dates: start: 20100317, end: 20100519
  7. ELPLAT [Concomitant]
     Route: 042
     Dates: start: 20091027, end: 20091113
  8. ELPLAT [Concomitant]
     Route: 042
     Dates: start: 20091125, end: 20100120
  9. FLUOROURACIL [Concomitant]
     Route: 042
     Dates: start: 20091027, end: 20091113
  10. FLUOROURACIL [Concomitant]
     Route: 042
     Dates: start: 20091125, end: 20100120
  11. FLUOROURACIL [Concomitant]
     Route: 042
     Dates: start: 20100203, end: 20100519
  12. ISOVORIN [Concomitant]
     Route: 042
     Dates: start: 20091027, end: 20091113
  13. ISOVORIN [Concomitant]
     Route: 042
     Dates: start: 20091125, end: 20100120
  14. ISOVORIN [Concomitant]
     Route: 042
     Dates: start: 20100203, end: 20100519
  15. CAMPTOSAR [Concomitant]
     Dates: start: 20100203, end: 20100519
  16. MUCOSTA [Concomitant]
     Route: 048
     Dates: start: 20091215, end: 20091224
  17. MUCOSTA [Concomitant]
     Route: 048
     Dates: start: 20100105, end: 20100114
  18. MUCOSTA [Concomitant]
     Route: 048
     Dates: start: 20100120, end: 20100131
  19. MUCOSTA [Concomitant]
     Route: 048
     Dates: start: 20100205, end: 20100209
  20. MUCOSTA [Concomitant]
     Route: 048
     Dates: start: 20100302, end: 20100306
  21. MUCOSTA [Concomitant]
     Route: 048
     Dates: start: 20100309, end: 20100319
  22. MUCOSTA [Concomitant]
     Route: 048
     Dates: start: 20100619, end: 20100623
  23. GASTER D [Concomitant]
     Route: 048
     Dates: start: 20100310, end: 20100519
  24. GASTER D [Concomitant]
     Route: 048
     Dates: start: 20100521, end: 20100619
  25. HYPEN [Concomitant]
     Route: 048
     Dates: start: 20100310, end: 20100519
  26. HYPEN [Concomitant]
     Route: 048
     Dates: start: 20100521, end: 20100609
  27. HYPEN [Concomitant]
     Route: 048
     Dates: start: 20100619, end: 20100623
  28. OXYCONTIN [Concomitant]
     Route: 048
     Dates: start: 20100317, end: 20100406
  29. OXYCONTIN [Concomitant]
     Route: 048
     Dates: start: 20100406, end: 20100517
  30. OXYCONTIN [Concomitant]
     Route: 048
     Dates: start: 20100518, end: 20100519
  31. OXYCONTIN [Concomitant]
     Route: 048
     Dates: start: 20100520, end: 20100520
  32. OXYCONTIN [Concomitant]
     Route: 048
     Dates: start: 20100521, end: 20100609
  33. OXYCONTIN [Concomitant]
     Route: 048
     Dates: start: 20100619, end: 20100623
  34. NOVAMIN [Concomitant]
     Route: 048
     Dates: start: 20100317, end: 20100519
  35. PURSENNID [Concomitant]
     Route: 048
     Dates: start: 20100317, end: 20100325
  36. PURSENNID [Concomitant]
     Route: 048
     Dates: start: 20100409, end: 20100429
  37. OXINORM [Concomitant]
     Route: 048
     Dates: start: 20100317, end: 20100401
  38. OXINORM [Concomitant]
     Route: 048
     Dates: start: 20100407, end: 20100418
  39. OXINORM [Concomitant]
     Route: 048
     Dates: start: 20100519, end: 20100615
  40. OXINORM [Concomitant]
     Route: 048
     Dates: start: 20100608, end: 20100612
  41. OXINORM [Concomitant]
     Route: 048
     Dates: start: 20100613, end: 20100615
  42. OXINORM [Concomitant]
     Route: 048
     Dates: start: 20100619, end: 20100623
  43. LAC-B [Concomitant]
     Route: 048
     Dates: start: 20100420, end: 20100426
  44. LAC-B [Concomitant]
     Dosage: MINUTE  GRAIN
     Route: 048
     Dates: start: 20100428, end: 20100623
  45. MAGNESIUM OXIDE [Concomitant]
     Dosage: DOSE FORM: PERORAL AGENT, DOSAGE IS UNCERTAIN.
     Route: 048
     Dates: start: 20100420, end: 20100426
  46. MAGNESIUM OXIDE [Concomitant]
     Dosage: DOSE FORM: PERORAL AGENT, DOSAGE IS UNCERTAIN.
     Route: 048
     Dates: start: 20100428, end: 20100623
  47. MYSLEE [Concomitant]
     Route: 049
     Dates: start: 20100619, end: 20100623
  48. LOXONIN [Concomitant]
     Route: 048
     Dates: start: 20091215, end: 20091224
  49. LOXONIN [Concomitant]
     Route: 048
     Dates: start: 20100105, end: 20100114
  50. LOXONIN [Concomitant]
     Route: 048
     Dates: start: 20100120, end: 20100131
  51. LOXONIN [Concomitant]
     Route: 048
     Dates: start: 20100205, end: 20100209
  52. LOXONIN [Concomitant]
     Route: 048
     Dates: start: 20100302, end: 20100306
  53. LOXONIN [Concomitant]
     Route: 048
     Dates: start: 20100309, end: 20100319
  54. LOXONIN [Concomitant]
     Route: 048
     Dates: start: 20100619, end: 20100623

REACTIONS (3)
  - CONSTIPATION [None]
  - HYPERTENSION [None]
  - LARGE INTESTINE PERFORATION [None]
